FAERS Safety Report 4268970-2 (Version None)
Quarter: 2004Q1

REPORT INFORMATION
  Report Type: 
  Country: None (occurrence: None)
  Receive Date: 20040109
  Receipt Date: 20031229
  Transmission Date: 20041129
  Serious: Yes (Hospitalization)
  Sender: FDA-Public Use
  Company Number: THYR-10129

PATIENT
  Age: 74 Year
  Sex: Female
  Weight: 63 kg

DRUGS (4)
  1. THYROGEN [Suspect]
     Indication: PREMEDICATION
     Dosage: 0.01 MG IM
     Route: 030
     Dates: start: 19991018, end: 19991206
  2. IODINE I-131 THERAPEUTIC SOLUTION [Suspect]
     Indication: GOITRE
     Dates: start: 19991207, end: 19991207
  3. PROZAC [Concomitant]
  4. AMILORIDE [Concomitant]

REACTIONS (4)
  - AGRANULOCYTOSIS [None]
  - AUTOIMMUNE DISORDER [None]
  - HYPERTHYROIDISM [None]
  - RIGHT VENTRICULAR FAILURE [None]
